FAERS Safety Report 13070725 (Version 2)
Quarter: 2017Q2

REPORT INFORMATION
  Report Type: Spontaneous
  Country: US (occurrence: US)
  Receive Date: 20161229
  Receipt Date: 20170516
  Transmission Date: 20170830
  Serious: No
  Sender: FDA-Public Use
  Company Number: US-BRISTOL-MYERS SQUIBB COMPANY-BMS-2016-110201

PATIENT
  Age: 42 Year

DRUGS (2)
  1. ABILIFY [Suspect]
     Active Substance: ARIPIPRAZOLE
     Indication: BIPOLAR DISORDER
     Dosage: 1 DF, UNK
     Route: 065
     Dates: start: 20100813, end: 20160122
  2. ABILIFY [Suspect]
     Active Substance: ARIPIPRAZOLE
     Indication: AFFECTIVE DISORDER
     Route: 065

REACTIONS (8)
  - Gambling disorder [Recovered/Resolved]
  - Mental disorder [Unknown]
  - Trichotillomania [Recovered/Resolved]
  - Emotional distress [Unknown]
  - Excoriation [Recovered/Resolved]
  - Injury [Unknown]
  - Compulsive sexual behaviour [Recovered/Resolved]
  - Eating disorder [Recovered/Resolved]

NARRATIVE: CASE EVENT DATE: 20161222
